FAERS Safety Report 5336331-0 (Version None)
Quarter: 2007Q2

REPORT INFORMATION
  Report Type: 
  Country: None (occurrence: None)
  Receive Date: 20070523
  Receipt Date: 20070514
  Transmission Date: 20071010
  Serious: Yes (Hospitalization)
  Sender: FDA-Public Use
  Company Number: 2007SP009393

PATIENT
  Age: 52 Year
  Sex: Female

DRUGS (2)
  1. PEG-INTRON [Suspect]
     Indication: HEPATITIS C
     Dosage: ;SC
     Route: 058
     Dates: start: 20070419
  2. RIBAVIRIN [Suspect]
     Indication: HEPATITIS C
     Dosage: ; PO
     Route: 048
     Dates: start: 20070419

REACTIONS (11)
  - ARTHRALGIA [None]
  - CARDIAC DISORDER [None]
  - DIZZINESS [None]
  - EPISTAXIS [None]
  - FALL [None]
  - HEPATIC CYST [None]
  - MOVEMENT DISORDER [None]
  - PAIN [None]
  - PYREXIA [None]
  - VISION BLURRED [None]
  - WHITE BLOOD CELL COUNT DECREASED [None]
